FAERS Safety Report 13395509 (Version 1)
Quarter: 2017Q2

REPORT INFORMATION
  Report Type: Spontaneous
  Country: US (occurrence: US)
  Receive Date: 20170402
  Receipt Date: 20170402
  Transmission Date: 20170830
  Serious: Yes (Hospitalization, Disabling, Other)
  Sender: FDA-Public Use
  Company Number: None

PATIENT
  Age: 29 Year
  Sex: Female
  Weight: 90 kg

DRUGS (4)
  1. NAPROXEN. [Concomitant]
     Active Substance: NAPROXEN
  2. ORPHENADRINE CITRATE ER TABLETS [Concomitant]
     Active Substance: ORPHENADRINE CITRATE
  3. XIIDRA [Suspect]
     Active Substance: LIFITEGRAST
     Indication: DRY EYE
     Route: 047
  4. MYORISAN [Concomitant]
     Active Substance: ISOTRETINOIN

REACTIONS (3)
  - Respiratory tract infection [None]
  - Viral upper respiratory tract infection [None]
  - Product contamination [None]

NARRATIVE: CASE EVENT DATE: 20170309
